FAERS Safety Report 8103315-9 (Version None)
Quarter: 2012Q1

REPORT INFORMATION
  Report Type: 
  Country: None (occurrence: None)
  Receive Date: 20120127
  Receipt Date: 20120120
  Transmission Date: 20120608
  Serious: Yes (Hospitalization, Other)
  Sender: FDA-Public Use
  Company Number: 1000027322

PATIENT
  Age: 60 Year
  Sex: Male

DRUGS (4)
  1. FOCALIN [Concomitant]
  2. VIIBRYD [Suspect]
     Indication: DEPRESSION
     Dosage: 40 MG (40 MG,1 IN 1 D)
     Dates: start: 20111125, end: 20120113
  3. VIIBRYD [Suspect]
     Indication: DEPRESSION
     Dosage: 10 MG (10 MG,1 IN 1 D) : 20 MG (20 MG,1 IN 1 D)
     Dates: start: 20111111, end: 20111117
  4. VIIBRYD [Suspect]
     Indication: DEPRESSION
     Dosage: 10 MG (10 MG,1 IN 1 D) : 20 MG (20 MG,1 IN 1 D)
     Dates: start: 20111118, end: 20111124

REACTIONS (7)
  - CLUMSINESS [None]
  - SUICIDAL BEHAVIOUR [None]
  - HYPERSENSITIVITY [None]
  - CRYING [None]
  - MEMORY IMPAIRMENT [None]
  - EMOTIONAL DISORDER [None]
  - ANGER [None]
